FAERS Safety Report 12071243 (Version 2)
Quarter: 2016Q1

REPORT INFORMATION
  Report Type: Report from Study
  Country: US (occurrence: US)
  Receive Date: 20160211
  Receipt Date: 20160216
  Transmission Date: 20160526
  Serious: Yes (Death)
  Sender: FDA-Public Use
  Company Number: US-B.I. PHARMACEUTICALS,INC./RIDGEFIELD-2015-BI-65025BP

PATIENT
  Sex: Male

DRUGS (1)
  1. OFEV [Suspect]
     Active Substance: NINTEDANIB
     Indication: IDIOPATHIC PULMONARY FIBROSIS
     Dosage: 300 MG
     Route: 048
     Dates: start: 20151113, end: 20151130

REACTIONS (5)
  - Diarrhoea [Unknown]
  - Abdominal pain lower [Unknown]
  - Hypotension [Unknown]
  - Fatigue [Unknown]
  - Idiopathic pulmonary fibrosis [Fatal]
